FAERS Safety Report 6356335-9 (Version None)
Quarter: 2009Q3

REPORT INFORMATION
  Report Type: 
  Country: None (occurrence: None)
  Receive Date: 20090915
  Receipt Date: 20090903
  Transmission Date: 20100115
  Serious: Yes (Other)
  Sender: FDA-Public Use
  Company Number: US-PFIZER INC-2003113426

PATIENT
  Sex: Female
  Weight: 88 kg

DRUGS (11)
  1. NARDIL [Suspect]
     Indication: ANXIETY
     Route: 048
     Dates: start: 19810101
  2. NARDIL [Suspect]
     Indication: DEPRESSION
  3. ADDERALL 10 [Concomitant]
     Route: 048
     Dates: start: 20031001
  4. PROVIGIL [Concomitant]
     Route: 048
     Dates: start: 20031001
  5. ZONEGRAN [Concomitant]
     Route: 048
     Dates: start: 20030301
  6. AMBIEN [Concomitant]
     Route: 048
     Dates: start: 20030601
  7. LORAZEPAM [Concomitant]
     Route: 065
  8. YOHIMBINE HYDROCHLORIDE [Concomitant]
     Indication: HYPOTENSION
  9. NIFEDIPINE [Concomitant]
  10. TRILEPTAL [Concomitant]
  11. CLONAZEPAM [Concomitant]

REACTIONS (18)
  - ABDOMINAL DISCOMFORT [None]
  - BREAST CANCER [None]
  - C-REACTIVE PROTEIN INCREASED [None]
  - DRUG INEFFECTIVE [None]
  - DRY MOUTH [None]
  - DYSGEUSIA [None]
  - FATIGUE [None]
  - FLUID INTAKE REDUCED [None]
  - HEAD DISCOMFORT [None]
  - HEADACHE [None]
  - HYPERTENSIVE CRISIS [None]
  - HYPOTENSION [None]
  - NAUSEA [None]
  - ORTHOSTATIC HYPOTENSION [None]
  - PALPITATIONS [None]
  - SOMNOLENCE [None]
  - WEIGHT DECREASED [None]
  - WEIGHT INCREASED [None]
